FAERS Safety Report 23176079 (Version 1)
Quarter: 2023Q4

REPORT INFORMATION
  Report Type: Spontaneous
  Country: US (occurrence: US)
  Receive Date: 20231113
  Receipt Date: 20231113
  Transmission Date: 20240110
  Serious: Yes (Hospitalization, Other)
  Sender: FDA-Public Use
  Company Number: US-SA-SAC20230908001187

PATIENT
  Age: 61 Year
  Sex: Female
  Weight: 110 kg

DRUGS (19)
  1. DUPIXENT [Suspect]
     Active Substance: DUPILUMAB
     Indication: Asthma
     Dosage: 600 MG, 1X
     Route: 058
  2. DUPIXENT [Suspect]
     Active Substance: DUPILUMAB
     Dosage: 300 MG, QOW
     Route: 058
  3. DEVICE [Concomitant]
     Active Substance: DEVICE
     Dosage: UNK
  4. FONDAPARINUX [Concomitant]
     Active Substance: FONDAPARINUX
  5. XARELTO [Concomitant]
     Active Substance: RIVAROXABAN
  6. EPIPEN JR [Concomitant]
     Active Substance: EPINEPHRINE
  7. ALBUTEROL SULFATE [Concomitant]
     Active Substance: ALBUTEROL SULFATE
     Dosage: 03MG
  8. SEMUELE [Concomitant]
  9. HUMALOG [Concomitant]
     Active Substance: INSULIN LISPRO
  10. ATORVASTATIN CALCIUM [Concomitant]
     Active Substance: ATORVASTATIN CALCIUM
  11. SINGULAIR [Concomitant]
     Active Substance: MONTELUKAST SODIUM
  12. FUROSEMIDE [Concomitant]
     Active Substance: FUROSEMIDE
  13. HYOSCYAMINE SULFATE [Concomitant]
     Active Substance: HYOSCYAMINE SULFATE
  14. POLY-IRON [FERROUS GLUCONATE] [Concomitant]
  15. PREDNISONE [Concomitant]
     Active Substance: PREDNISONE
  16. ESOMEPRAZOLE MAGNESIUM [Concomitant]
     Active Substance: ESOMEPRAZOLE\ESOMEPRAZOLE MAGNESIUM\ESOMEPRAZOLE MAGNESIUM DIHYDRATE
  17. PULMICORT TURBUHALER [Concomitant]
     Active Substance: BUDESONIDE
  18. IPRATROPIUM [Concomitant]
     Active Substance: IPRATROPIUM
  19. ALBUTEROL [Concomitant]
     Active Substance: ALBUTEROL

REACTIONS (5)
  - Thrombosis [Unknown]
  - Pulmonary thrombosis [Unknown]
  - Cataract [Unknown]
  - Cardiac operation [Unknown]
  - Visual impairment [Unknown]
